FAERS Safety Report 6101431-4 (Version None)
Quarter: 2009Q1

REPORT INFORMATION
  Report Type: 
  Country: None (occurrence: None)
  Receive Date: 20090227
  Receipt Date: 20081119
  Transmission Date: 20090719
  Serious: Yes (Other)
  Sender: FDA-Public Use
  Company Number: 2008S1020802

PATIENT
  Age: 17 Year
  Sex: Male

DRUGS (2)
  1. AMNESTEEM [Suspect]
     Indication: ACNE
     Dosage: 40 MG;TWICE A DAY;ORAL
     Route: 048
     Dates: start: 20081003
  2. SOTRET [Suspect]
     Indication: ACNE
     Dosage: 30 MG;DAILY;ORAL
     Route: 048
     Dates: start: 20080903, end: 20081002

REACTIONS (1)
  - GROWTH RETARDATION [None]
